FAERS Safety Report 6683950-5 (Version None)
Quarter: 2010Q2

REPORT INFORMATION
  Report Type: 
  Country: None (occurrence: None)
  Receive Date: 20100416
  Receipt Date: 20100408
  Transmission Date: 20101027
  Serious: Yes (Other)
  Sender: FDA-Public Use
  Company Number: FI-PFIZER INC-2010041582

PATIENT
  Age: 63 Year
  Sex: Female

DRUGS (8)
  1. PROVERA [Suspect]
     Indication: AMENORRHOEA
     Dosage: 5 MG
  2. PROVERA [Suspect]
     Indication: MENOPAUSAL SYMPTOMS
     Dosage: 10 MG
     Dates: start: 20100101
  3. ESTROGEL [Concomitant]
     Indication: HORMONE REPLACEMENT THERAPY
  4. SERETIDE DISKUS [Concomitant]
     Indication: ASTHMA
  5. THYROXIN [Concomitant]
     Indication: HYPOTHYROIDISM
  6. SIMVASTATIN [Concomitant]
     Indication: HYPERCHOLESTEROLAEMIA
     Dosage: 10 MG, UNK
  7. XALATAN [Concomitant]
     Indication: GLAUCOMA
     Dosage: 1 GTT IN THE EVENINGS IN ONE EYE
  8. STILNOCT [Concomitant]
     Indication: INITIAL INSOMNIA
     Dosage: UNK

REACTIONS (3)
  - DRUG INEFFECTIVE [None]
  - ENDOMETRIAL HYPERTROPHY [None]
  - UTERINE POLYP [None]
